FAERS Safety Report 6417762-4 (Version None)
Quarter: 2009Q4

REPORT INFORMATION
  Report Type: 
  Country: None (occurrence: None)
  Receive Date: 20091026
  Receipt Date: 20091013
  Transmission Date: 20100525
  Serious: Yes (Hospitalization)
  Sender: FDA-Public Use
  Company Number: ADR38232009

PATIENT
  Age: 56 Year
  Sex: Male

DRUGS (9)
  1. SIMVASTATIN [Suspect]
     Dosage: 40 MG, 1/1 DAYS
  2. AMIODARONE (SUSPECT) (1.2 G) [Concomitant]
  3. CLARITHROMYCIN (1G) [Concomitant]
  4. ADENOSINE [Concomitant]
  5. AMLODIPINE [Concomitant]
  6. ASPIRIN [Concomitant]
  7. CEFTRIAXONE (1G) [Concomitant]
  8. FERROUS SULPHATE (600MG) [Concomitant]
  9. LANSOPRAZOLE [Concomitant]

REACTIONS (14)
  - ASTHENIA [None]
  - DRUG INTERACTION [None]
  - DYSPNOEA [None]
  - LIVER FUNCTION TEST ABNORMAL [None]
  - LOWER RESPIRATORY TRACT INFECTION [None]
  - MYALGIA [None]
  - MYOPATHY [None]
  - MYOSITIS [None]
  - PALPITATIONS [None]
  - PERICARDIAL EFFUSION [None]
  - PLEURAL EFFUSION [None]
  - PNEUMONIA [None]
  - PULMONARY EMBOLISM [None]
  - SUPRAVENTRICULAR TACHYCARDIA [None]
